FAERS Safety Report 9343852 (Version 2)
Quarter: 2013Q3

REPORT INFORMATION
  Report Type: Spontaneous
  Country: US (occurrence: US)
  Receive Date: 20130612
  Receipt Date: 20130724
  Transmission Date: 20140515
  Serious: No
  Sender: FDA-Public Use
  Company Number: US-PFIZER INC-2013173422

PATIENT
  Age: 65 Year
  Sex: Female
  Weight: 48.53 kg

DRUGS (3)
  1. VFEND [Suspect]
     Indication: ASPERGILLUS INFECTION
     Dosage: 200 MG, 2X/DAY
     Route: 048
     Dates: start: 20130404, end: 20130610
  2. CLONAZEPAM [Interacting]
     Indication: PANIC DISORDER
     Dosage: 0.5 MG, 2X/DAY
  3. EFEXOR XR [Concomitant]
     Indication: PANIC DISORDER
     Dosage: 37.5 MG, DAILY

REACTIONS (6)
  - Drug interaction [Unknown]
  - Somnolence [Unknown]
  - Hypersensitivity [Recovered/Resolved]
  - Transaminases increased [Recovered/Resolved]
  - Vomiting [Recovered/Resolved]
  - Nausea [Recovered/Resolved]
